FAERS Safety Report 9358957 (Version 3)
Quarter: 2014Q1

REPORT INFORMATION
  Report Type: Spontaneous
  Country: US (occurrence: US)
  Receive Date: 20130620
  Receipt Date: 20140314
  Transmission Date: 20141002
  Serious: Yes (Hospitalization)
  Sender: FDA-Public Use
  Company Number: US-B.I. PHARMACEUTICALS,INC./RIDGEFIELD-2013-BI-17230BP

PATIENT
  Sex: Female

DRUGS (8)
  1. PRADAXA [Suspect]
     Indication: ATRIAL FIBRILLATION
     Dosage: 150 MG
     Route: 048
     Dates: start: 20120424, end: 20120427
  2. ASPIRIN [Suspect]
     Indication: PRODUCT USED FOR UNKNOWN INDICATION
     Dosage: 81 MG
     Route: 065
  3. LASIX [Concomitant]
     Dosage: 20 MG
     Route: 065
  4. CARVEDILOL [Concomitant]
     Dosage: 25 MG
     Route: 065
  5. DILTIAZEM [Concomitant]
     Dosage: 180 MG
     Route: 065
  6. LISINOPRIL [Concomitant]
     Dosage: 5 MG
     Route: 065
  7. PRAVASTATIN [Concomitant]
     Dosage: 20 MG
     Route: 065
  8. MULTIVITAMIN [Concomitant]
     Route: 065

REACTIONS (3)
  - Lower gastrointestinal haemorrhage [Recovered/Resolved]
  - Anaemia [Unknown]
  - Coagulopathy [Recovered/Resolved]
